FAERS Safety Report 24009532 (Version 1)
Quarter: 2024Q2

REPORT INFORMATION
  Report Type: Report from Study
  Country: US (occurrence: US)
  Receive Date: 20240625
  Receipt Date: 20240625
  Transmission Date: 20240716
  Serious: Yes (Other)
  Sender: FDA-Public Use
  Company Number: US-UCBSA-2024030856

PATIENT
  Sex: Male
  Weight: 2.785 kg

DRUGS (4)
  1. LEVETIRACETAM [Suspect]
     Active Substance: LEVETIRACETAM
     Indication: Seizure
     Dosage: 1500 MILLIGRAM IN MORNING 2000 MILLIGRAM IN EVENING (3 IN MORNING 4 AT NIGHT)
     Route: 064
     Dates: start: 2023, end: 20240108
  2. LEVETIRACETAM [Suspect]
     Active Substance: LEVETIRACETAM
     Indication: Epilepsy
     Dosage: 1500 MILLIGRAM IN MORNING 2000 MILLIGRAM IN EVENING (3 IN MORNING 4 AT NIGHT)
     Route: 063
     Dates: start: 20240108, end: 20240301
  3. LAMOTRIGINE [Concomitant]
     Active Substance: LAMOTRIGINE
     Indication: Epilepsy
     Dosage: 100 MILLIGRAM IN MORNING AND 200 MILLIGRAM IN EVENING
     Route: 064
     Dates: start: 2005
  4. LAMOTRIGINE [Concomitant]
     Active Substance: LAMOTRIGINE
     Dosage: 100 MILLIGRAM IN MORNING AND 200 MILLIGRAM IN EVENING
     Route: 063
     Dates: start: 20240108

REACTIONS (7)
  - Small for dates baby [Unknown]
  - Gastrooesophageal reflux in neonate [Unknown]
  - Somnolence [Unknown]
  - Irritability [Unknown]
  - Maternal exposure during pregnancy [Unknown]
  - Maternal exposure before pregnancy [Unknown]
  - Exposure via breast milk [Unknown]

NARRATIVE: CASE EVENT DATE: 20230101
